FAERS Safety Report 5627267-6 (Version None)
Quarter: 2008Q1

REPORT INFORMATION
  Report Type: 
  Country: None (occurrence: None)
  Receive Date: 20080129
  Receipt Date: 20070124
  Transmission Date: 20080703
  Serious: Yes (Death)
  Sender: FDA-Public Use
  Company Number: 8021532

PATIENT

DRUGS (1)
  1. KEPPRA [Suspect]

REACTIONS (1)
  - COMPLETED SUICIDE [None]
